FAERS Safety Report 15500658 (Version 1)
Quarter: 2018Q4

REPORT INFORMATION
  Report Type: Spontaneous
  Country: US (occurrence: US)
  Receive Date: 20181015
  Receipt Date: 20181015
  Transmission Date: 20190205
  Serious: No
  Sender: FDA-Public Use
  Company Number: None

PATIENT
  Age: 28 Year
  Sex: Female
  Weight: 93.44 kg

DRUGS (1)
  1. LILETTA [Suspect]
     Active Substance: LEVONORGESTREL
     Dates: start: 20170725

REACTIONS (4)
  - Feeling abnormal [None]
  - Dyspepsia [None]
  - Bacterial infection [None]
  - Weight increased [None]

NARRATIVE: CASE EVENT DATE: 20181015
